FAERS Safety Report 5535517-X (Version None)
Quarter: 2007Q4

REPORT INFORMATION
  Report Type: 
  Country: None (occurrence: None)
  Receive Date: 20071203
  Receipt Date: 20071203
  Transmission Date: 20080405
  Serious: Yes (Other)
  Sender: FDA-Public Use
  Company Number: None

PATIENT
  Age: 36 Year
  Sex: Female
  Weight: 81.6475 kg

DRUGS (2)
  1. ZYPREXA [Suspect]
     Indication: BIPOLAR I DISORDER
     Dosage: 15MG  1X  PO
     Route: 048
     Dates: start: 20070701, end: 20071101
  2. KLONOPIN [Suspect]
     Indication: ANXIETY
     Dosage: .5MG  1X  PO
     Route: 048
     Dates: start: 20070701, end: 20071101

REACTIONS (9)
  - ANXIETY [None]
  - DISTURBANCE IN ATTENTION [None]
  - DRUG INEFFECTIVE [None]
  - EMOTIONAL DISORDER [None]
  - FEAR [None]
  - MALAISE [None]
  - PARANOIA [None]
  - PHARMACEUTICAL PRODUCT COMPLAINT [None]
  - POOR QUALITY DRUG ADMINISTERED [None]
